FAERS Safety Report 9244639 (Version 2)
Quarter: 2013Q2

REPORT INFORMATION
  Report Type: Report from Study
  Country: AU (occurrence: AU)
  Receive Date: 20130422
  Receipt Date: 20130625
  Transmission Date: 20140414
  Serious: Yes (Hospitalization, Other)
  Sender: FDA-Public Use
  Company Number: AU-PFIZER INC-2013096456

PATIENT
  Age: 68 Year
  Sex: Male
  Weight: 62 kg

DRUGS (2)
  1. CRIZOTINIB [Suspect]
     Indication: NON-SMALL CELL LUNG CANCER
     Dosage: 250 MG, 2X/DAY
     Route: 048
     Dates: start: 20130228, end: 20130403
  2. FISH OIL [Concomitant]
     Indication: OSTEOARTHRITIS
     Dosage: 1 DF, 1X/DAY
     Route: 048

REACTIONS (3)
  - Cellulitis [Recovered/Resolved]
  - Liver function test abnormal [Recovered/Resolved]
  - Oedema peripheral [Recovered/Resolved]
